FAERS Safety Report 11849827 (Version 1)
Quarter: 2015Q4

REPORT INFORMATION
  Report Type: Spontaneous
  Country: US (occurrence: US)
  Receive Date: 20151218
  Receipt Date: 20151218
  Transmission Date: 20160305
  Serious: Yes (Hospitalization, Other)
  Sender: FDA-Public Use
  Company Number: US-ZYDUS-009701

PATIENT
  Age: 35 Year
  Sex: Female

DRUGS (1)
  1. OXYCODONE [Suspect]
     Active Substance: OXYCODONE
     Indication: BACK PAIN
     Route: 065

REACTIONS (7)
  - Muscle spasticity [Unknown]
  - Hypoxia [Unknown]
  - Hypercapnia [Unknown]
  - Spinal cord ischaemia [Unknown]
  - Quadriplegia [Unknown]
  - Intentional overdose [Unknown]
  - Respiratory depression [Unknown]
